FAERS Safety Report 4303844-X (Version None)
Quarter: 2004Q1

REPORT INFORMATION
  Report Type: 
  Country: None (occurrence: None)
  Receive Date: 20040224
  Receipt Date: 20040224
  Transmission Date: 20041129
  Serious: No
  Sender: FDA-Public Use
  Company Number: None

PATIENT
  Age: 51 Year
  Sex: Male
  Weight: 119 kg

DRUGS (1)
  1. TOPIRAMATE [Suspect]
     Indication: BIPOLAR DISORDER
     Dosage: 50 MG PO BID
     Route: 048
     Dates: start: 20031117, end: 20031126

REACTIONS (3)
  - HEADACHE [None]
  - SLEEP DISORDER [None]
  - TINNITUS [None]
